FAERS Safety Report 5748114-8 (Version None)
Quarter: 2008Q2

REPORT INFORMATION
  Report Type: 
  Country: None (occurrence: None)
  Receive Date: 20080521
  Receipt Date: 20080512
  Transmission Date: 20081010
  Serious: Yes (Other)
  Sender: FDA-Public Use
  Company Number: 2008BI001491

PATIENT
  Age: 58 Year
  Sex: Female

DRUGS (1)
  1. AVONEX [Suspect]
     Indication: MULTIPLE SCLEROSIS
     Dosage: 30 UG;QM;IM
     Route: 030
     Dates: start: 20070301

REACTIONS (5)
  - BLOOD PRESSURE INCREASED [None]
  - DIPLOPIA [None]
  - LOSS OF CONSCIOUSNESS [None]
  - MULTIPLE SYSTEM ATROPHY [None]
  - SYNCOPE [None]
